FAERS Safety Report 5831878-2 (Version None)
Quarter: 2008Q3

REPORT INFORMATION
  Report Type: 
  Country: None (occurrence: None)
  Receive Date: 20080729
  Receipt Date: 20080711
  Transmission Date: 20090109
  Serious: Yes (Other)
  Sender: FDA-Public Use
  Company Number: ENTC2007-0239

PATIENT
  Age: 67 Year
  Sex: Male

DRUGS (1)
  1. STALEVO 100 [Suspect]
     Indication: PARKINSON'S DISEASE
     Dosage: 1/2 TABLET EVERY 3 HOURS
     Route: 048
     Dates: start: 20080201

REACTIONS (12)
  - ABDOMINAL PAIN [None]
  - CONDITION AGGRAVATED [None]
  - GAIT DISTURBANCE [None]
  - INDURATION [None]
  - NOCTURIA [None]
  - PARKINSON'S DISEASE [None]
  - POLLAKIURIA [None]
  - SPEECH DISORDER [None]
  - THERAPEUTIC RESPONSE DECREASED [None]
  - THERAPEUTIC RESPONSE DELAYED [None]
  - TREMOR [None]
  - WEIGHT DECREASED [None]
